FAERS Safety Report 22089796 (Version 1)
Quarter: 2023Q1

REPORT INFORMATION
  Report Type: Spontaneous
  Country: US (occurrence: US)
  Receive Date: 20230313
  Receipt Date: 20230313
  Transmission Date: 20230418
  Serious: Yes (Other)
  Sender: FDA-Public Use
  Company Number: US-COLGATE PALMOLIVE COMPANY-20220901692

PATIENT
  Sex: Female

DRUGS (1)
  1. COLGATE OPTIC WHITE - SPARKLING MINT [Suspect]
     Active Substance: SODIUM MONOFLUOROPHOSPHATE
     Dosage: UNK, BID FOR 3 DAYS
     Dates: start: 20220902, end: 20220905

REACTIONS (9)
  - Gingival disorder [Recovering/Resolving]
  - Gingival pain [Recovering/Resolving]
  - Hyperaesthesia teeth [Recovering/Resolving]
  - Feeding disorder [Recovering/Resolving]
  - Headache [Recovering/Resolving]
  - Pain in jaw [Recovering/Resolving]
  - Gingival swelling [Not Recovered/Not Resolved]
  - Oral mucosal exfoliation [Recovering/Resolving]
  - Toothache [Recovering/Resolving]

NARRATIVE: CASE EVENT DATE: 20220901
